FAERS Safety Report 13247592 (Version 1)
Quarter: 2017Q1

REPORT INFORMATION
  Report Type: Other
  Country: FR (occurrence: FR)
  Receive Date: 20170217
  Receipt Date: 20170217
  Transmission Date: 20170428
  Serious: Yes (Hospitalization)
  Sender: FDA-Public Use
  Company Number: FR-VALIDUS PHARMACEUTICALS LLC-FR-2017VAL000229

PATIENT
  Age: 5 Month
  Sex: Male

DRUGS (4)
  1. FUROSEMIDE. [Suspect]
     Active Substance: FUROSEMIDE
     Indication: VENTRICULAR SEPTAL DEFECT
     Dosage: 4 MG, EVERY 8 HOURS
     Route: 048
  2. INEXIUM [Suspect]
     Active Substance: ESOMEPRAZOLE
     Indication: VOMITING
     Dosage: 5 MG, QD
     Route: 048
     Dates: start: 20170111
  3. CAPTOPRIL. [Suspect]
     Active Substance: CAPTOPRIL
     Indication: VENTRICULAR SEPTAL DEFECT
     Dosage: 5 MG, EVERY 8 HOURS
     Route: 048
     Dates: start: 20161031, end: 20170127
  4. FERROSTRANE [Concomitant]
     Active Substance: SODIUM FEREDETATE
     Indication: PRODUCT USED FOR UNKNOWN INDICATION
     Dosage: UNK

REACTIONS (2)
  - Alanine aminotransferase increased [Not Recovered/Not Resolved]
  - Aspartate aminotransferase increased [Not Recovered/Not Resolved]

NARRATIVE: CASE EVENT DATE: 20170125
